FAERS Safety Report 16026722 (Version 1)
Quarter: 2019Q1

REPORT INFORMATION
  Report Type: Spontaneous
  Country: SE (occurrence: SE)
  Receive Date: 20190303
  Receipt Date: 20190303
  Transmission Date: 20190418
  Serious: Yes (Life-Threatening, Hospitalization, Disabling)
  Sender: FDA-Public Use
  Company Number: SE-ACCORD-110559

PATIENT
  Age: 53 Year
  Sex: Male
  Weight: 130 kg

DRUGS (8)
  1. SOMATROPIN. [Concomitant]
     Active Substance: SOMATROPIN
  2. EPLERENONE. [Concomitant]
     Active Substance: EPLERENONE
  3. ALVEDON [Concomitant]
     Active Substance: ACETAMINOPHEN
  4. OXYCODONE/OXYCODONE HYDROCHLORIDE/OXYCODONE PECTINATE/OXYCODONE TEREPHTHALATE [Concomitant]
  5. AMLODIPINE [Suspect]
     Active Substance: AMLODIPINE BESYLATE
     Indication: CARDIAC FAILURE
     Dosage: 5MG / DAY
     Dates: end: 20180817
  6. MIRTAZAPINE. [Concomitant]
     Active Substance: MIRTAZAPINE
  7. ENTRESTO [Concomitant]
     Active Substance: SACUBITRIL\VALSARTAN
     Dates: end: 20180817
  8. TESTOSTERONE. [Concomitant]
     Active Substance: TESTOSTERONE

REACTIONS (10)
  - Hyperhidrosis [Unknown]
  - Suicidal ideation [Unknown]
  - Anxiety [Unknown]
  - Pigmentation disorder [Unknown]
  - Vasculitis [Unknown]
  - Personality disorder [Unknown]
  - Asthenia [Unknown]
  - Pain [Unknown]
  - Pruritus [Unknown]
  - Joint swelling [Unknown]

NARRATIVE: CASE EVENT DATE: 20170101
